FAERS Safety Report 4828076-8 (Version None)
Quarter: 2005Q4

REPORT INFORMATION
  Report Type: 
  Country: None (occurrence: None)
  Receive Date: 20051114
  Receipt Date: 20051114
  Transmission Date: 20060501
  Serious: Yes (Life-Threatening, Other)
  Sender: FDA-Public Use
  Company Number: None

PATIENT
  Sex: Female
  Weight: 40.8237 kg

DRUGS (2)
  1. ORTHO EVRA [Suspect]
     Indication: ENDOMETRIOSIS
     Dates: start: 20040401, end: 20040530
  2. ORTHO EVRA [Suspect]
     Indication: MUSCLE SPASMS
     Dates: start: 20040401, end: 20040530

REACTIONS (6)
  - CRYING [None]
  - DEPRESSION SUICIDAL [None]
  - DRUG HYPERSENSITIVITY [None]
  - HORMONE LEVEL ABNORMAL [None]
  - MOOD ALTERED [None]
  - PANIC ATTACK [None]
